FAERS Safety Report 6735102-8 (Version None)
Quarter: 2010Q2

REPORT INFORMATION
  Report Type: 
  Country: None (occurrence: None)
  Receive Date: 20100521
  Receipt Date: 20100512
  Transmission Date: 20101027
  Serious: Yes (Hospitalization, Other)
  Sender: FDA-Public Use
  Company Number: US-JNJFOC-20100110857

PATIENT
  Sex: Female

DRUGS (3)
  1. LEVAQUIN [Suspect]
     Indication: INFECTION
     Route: 048
  2. LEVAQUIN [Suspect]
     Route: 048
  3. COZAAR [Concomitant]
     Route: 065

REACTIONS (8)
  - ABASIA [None]
  - ADVERSE DRUG REACTION [None]
  - MALAISE [None]
  - OEDEMA PERIPHERAL [None]
  - PAIN IN EXTREMITY [None]
  - SHOULDER ARTHROPLASTY [None]
  - SWELLING FACE [None]
  - TENDON DISORDER [None]
